FAERS Safety Report 26065964 (Version 1)
Quarter: 2025Q4

REPORT INFORMATION
  Report Type: Spontaneous
  Country: CH (occurrence: CH)
  Receive Date: 20251119
  Receipt Date: 20251119
  Transmission Date: 20260117
  Serious: Yes (Other)
  Sender: MERCK SHARP & DOHME LLC
  Company Number: CH-009507513-2350673

PATIENT
  Age: 7 Month
  Sex: Female

DRUGS (3)
  1. MEASLES-MUMPS-RUBELLA VIRUS VACCINE [Suspect]
     Active Substance: MEASLES-MUMPS-RUBELLA VIRUS VACCINE
     Route: 065
  2. STERILE DILUENT (WATER) [Suspect]
     Active Substance: WATER
     Route: 065
  3. VARICELLA-ZOSTER VIRUS STRAIN OKA/MERCK LIVE ANTIGEN [Suspect]
     Active Substance: VARICELLA-ZOSTER VIRUS STRAIN OKA/MERCK LIVE ANTIGEN
     Route: 065

REACTIONS (1)
  - Seizure [Recovered/Resolved]
